FAERS Safety Report 5838691-0 (Version None)
Quarter: 2008Q3

REPORT INFORMATION
  Report Type: 
  Country: None (occurrence: None)
  Receive Date: 20080808
  Receipt Date: 20080730
  Transmission Date: 20090109
  Serious: Yes (Other)
  Sender: FDA-Public Use
  Company Number: B0359805A

PATIENT
  Age: 24 Year
  Sex: Male

DRUGS (5)
  1. SEROXAT [Suspect]
     Indication: DEPRESSION
     Dosage: 20MG PER DAY
     Route: 065
     Dates: start: 19950428
  2. FLUOXETINE [Concomitant]
     Dates: start: 20040901
  3. METFORMIN HCL [Concomitant]
     Dates: start: 20070101
  4. ATORVASTATIN [Concomitant]
     Dates: start: 20070101
  5. RAMIPRIL [Concomitant]
     Dates: start: 20070101

REACTIONS (9)
  - ABDOMINAL PAIN [None]
  - AGGRESSION [None]
  - DISSOCIATION [None]
  - DRUG WITHDRAWAL SYNDROME [None]
  - HOMICIDE [None]
  - HYPERHIDROSIS [None]
  - INSOMNIA [None]
  - MOOD SWINGS [None]
  - PANIC ATTACK [None]
